FAERS Safety Report 21605695 (Version 2)
Quarter: 2022Q4

REPORT INFORMATION
  Report Type: Report from Study
  Country: NL (occurrence: NL)
  Receive Date: 20221116
  Receipt Date: 20221118
  Transmission Date: 20230112
  Serious: Yes (Other)
  Sender: FDA-Public Use
  Company Number: NL-ABBVIE-22K-114-4228058-00

PATIENT
  Age: 74 Year
  Sex: Female

DRUGS (7)
  1. CARBIDOPA\LEVODOPA [Suspect]
     Active Substance: CARBIDOPA\LEVODOPA
     Indication: Parkinson^s disease
     Dosage: MORNING DOSE 6.0 ML.
     Route: 050
  2. CARBIDOPA\LEVODOPA [Suspect]
     Active Substance: CARBIDOPA\LEVODOPA
     Dosage: MD:7.9 ML, CD:2.7 ML/H, ED:2.0 ML, CND:1.7 ML/H, ED:1.0 ML
     Route: 050
     Dates: start: 202107
  3. CARBIDOPA\LEVODOPA [Suspect]
     Active Substance: CARBIDOPA\LEVODOPA
     Dosage: MD: 7 ML
     Route: 050
  4. CARBIDOPA\LEVODOPA [Suspect]
     Active Substance: CARBIDOPA\LEVODOPA
     Dosage: MD:6.5ML; CD:2.7ML/H; ED:2.0ML; CND:2.0ML/H; END:1.0ML
     Route: 050
  5. TERRA-CORTRIL [Concomitant]
     Active Substance: HYDROCORTISONE ACETATE\OXYTETRACYCLINE HYDROCHLORIDE
     Indication: Stoma site reaction
  6. SILVER NITRATE [Concomitant]
     Active Substance: SILVER NITRATE
     Indication: Product used for unknown indication
  7. LANOLIN\ZINC OXIDE [Concomitant]
     Active Substance: LANOLIN\ZINC OXIDE
     Indication: Stoma site erythema

REACTIONS (27)
  - Gastric haemorrhage [Recovering/Resolving]
  - Urinary tract infection [Not Recovered/Not Resolved]
  - Mobility decreased [Not Recovered/Not Resolved]
  - Nocturia [Not Recovered/Not Resolved]
  - Fibroma [Not Recovered/Not Resolved]
  - Visual acuity reduced [Not Recovered/Not Resolved]
  - Frequent bowel movements [Not Recovered/Not Resolved]
  - Pruritus [Not Recovered/Not Resolved]
  - Restlessness [Not Recovered/Not Resolved]
  - Fatigue [Not Recovered/Not Resolved]
  - Gait disturbance [Not Recovered/Not Resolved]
  - Abnormal dreams [Not Recovered/Not Resolved]
  - Stoma site induration [Not Recovered/Not Resolved]
  - Stoma site discharge [Not Recovered/Not Resolved]
  - Unevaluable event [Not Recovered/Not Resolved]
  - On and off phenomenon [Not Recovered/Not Resolved]
  - Dyskinesia [Not Recovered/Not Resolved]
  - Back pain [Not Recovered/Not Resolved]
  - Tension [Not Recovered/Not Resolved]
  - Decreased appetite [Recovering/Resolving]
  - Urinary incontinence [Not Recovered/Not Resolved]
  - Unevaluable event [Not Recovered/Not Resolved]
  - Middle insomnia [Not Recovered/Not Resolved]
  - Mental impairment [Not Recovered/Not Resolved]
  - Hallucination [Not Recovered/Not Resolved]
  - Stoma site erythema [Not Recovered/Not Resolved]
  - Anal incontinence [Unknown]

NARRATIVE: CASE EVENT DATE: 20220101
